FAERS Safety Report 5241927-0 (Version None)
Quarter: 2007Q1

REPORT INFORMATION
  Report Type: 
  Country: None (occurrence: None)
  Receive Date: 20070220
  Receipt Date: 20070208
  Transmission Date: 20070707
  Serious: Yes (Hospitalization)
  Sender: FDA-Public Use
  Company Number: FR-PFIZER INC-2007011705

PATIENT
  Age: 10 Year
  Sex: Male

DRUGS (2)
  1. CEFPODOXIME PROXETIL TABLET [Suspect]
     Indication: OTITIS MEDIA
     Dosage: DAILY DOSE:400MG
     Route: 048
     Dates: start: 20061224, end: 20061231
  2. SOLUPRED [Suspect]
     Indication: OTITIS MEDIA
     Dosage: DAILY DOSE:30MG
     Route: 048
     Dates: start: 20061224, end: 20061231

REACTIONS (1)
  - ANGIOEDEMA [None]
